FAERS Safety Report 15740559 (Version 1)
Quarter: 2018Q4

REPORT INFORMATION
  Report Type: Spontaneous
  Country: FR (occurrence: FR)
  Receive Date: 20181219
  Receipt Date: 20181219
  Transmission Date: 20190205
  Serious: Yes (Hospitalization)
  Sender: FDA-Public Use
  Company Number: PHHY2018FR189032

PATIENT
  Age: 87 Year
  Sex: Female
  Weight: 55.5 kg

DRUGS (1)
  1. AMOXICILLINE HEXAL [Suspect]
     Active Substance: AMOXICILLIN
     Indication: INFECTION
     Dosage: 200 MG/KG, UNK
     Route: 065

REACTIONS (2)
  - Renal tubular necrosis [Recovered/Resolved]
  - Acute kidney injury [Recovered/Resolved]

NARRATIVE: CASE EVENT DATE: 201810
